FAERS Safety Report 7293674-1 (Version None)
Quarter: 2011Q1

REPORT INFORMATION
  Report Type: 
  Country: None (occurrence: None)
  Receive Date: 20110215
  Receipt Date: 20110207
  Transmission Date: 20110831
  Serious: Yes (Death)
  Sender: FDA-Public Use
  Company Number: B0697370A

PATIENT
  Age: 18 Year
  Sex: Female

DRUGS (6)
  1. LIDOCAINE HYDROCHLORIDE [Concomitant]
     Route: 065
  2. RELENZA [Suspect]
     Indication: INFLUENZA
     Route: 055
     Dates: start: 20110126
  3. MEYLON [Concomitant]
     Route: 042
  4. EPINEPHRINE [Concomitant]
     Route: 065
  5. VEEN F [Concomitant]
     Route: 042
  6. MUCOSTA [Concomitant]
     Route: 048

REACTIONS (2)
  - DEPRESSED LEVEL OF CONSCIOUSNESS [None]
  - HYPOTHERMIA [None]
